FAERS Safety Report 23440777 (Version 1)
Quarter: 2024Q1

REPORT INFORMATION
  Report Type: Spontaneous
  Country: US (occurrence: None)
  Receive Date: 20240125
  Receipt Date: 20240125
  Transmission Date: 20240410
  Serious: No
  Sender: FDA-Public Use
  Company Number: 2024A018286

PATIENT
  Sex: Female

DRUGS (1)
  1. FASENRA [Suspect]
     Active Substance: BENRALIZUMAB
     Route: 058

REACTIONS (9)
  - Insomnia [Unknown]
  - Rhinorrhoea [Unknown]
  - Chest discomfort [Unknown]
  - Sneezing [Unknown]
  - Asthenia [Unknown]
  - Fatigue [Unknown]
  - Respiratory distress [Unknown]
  - Product distribution issue [Unknown]
  - Inappropriate schedule of product administration [Unknown]
